FAERS Safety Report 9878869 (Version 2)
Quarter: 2014Q1

REPORT INFORMATION
  Report Type: Spontaneous
  Country: US (occurrence: US)
  Receive Date: 20140206
  Receipt Date: 20140206
  Transmission Date: 20141002
  Serious: No
  Sender: FDA-Public Use
  Company Number: US-ALLERGAN-1309321US

PATIENT
  Age: 59 Year
  Sex: Female

DRUGS (5)
  1. BOTOX [Suspect]
     Indication: POLLAKIURIA
     Dosage: 100 UNITS, SINGLE
     Route: 030
     Dates: start: 20130618, end: 20130618
  2. OXYCODONE [Concomitant]
     Indication: BLADDER PAIN
  3. FENTANYL [Concomitant]
     Indication: BLADDER PAIN
  4. DILTIAZEM [Concomitant]
     Indication: BLOOD PRESSURE
  5. WELLBUTRIN [Concomitant]
     Indication: PAIN

REACTIONS (5)
  - Bladder pain [Not Recovered/Not Resolved]
  - Influenza like illness [Not Recovered/Not Resolved]
  - Muscular weakness [Not Recovered/Not Resolved]
  - Myalgia [Not Recovered/Not Resolved]
  - Hyperhidrosis [Not Recovered/Not Resolved]
